FAERS Safety Report 5454760-1 (Version None)
Quarter: 2007Q3

REPORT INFORMATION
  Report Type: 
  Country: None (occurrence: None)
  Receive Date: 20070917
  Receipt Date: 20060809
  Transmission Date: 20080115
  Serious: No
  Sender: FDA-Public Use
  Company Number: US-ASTRAZENECA-2006UW15994

PATIENT
  Age: 36 Year
  Sex: Female

DRUGS (4)
  1. SEROQUEL [Suspect]
     Dosage: 50 MG BID / 100 MG HS
     Route: 048
  2. SEROQUEL [Suspect]
     Dosage: 100 MG BID / 100 MG HS
     Route: 048
  3. AMBIEN [Concomitant]
  4. TYLENOL (CAPLET) [Concomitant]

REACTIONS (2)
  - PSYCHOMOTOR SKILLS IMPAIRED [None]
  - THINKING ABNORMAL [None]
